FAERS Safety Report 5580748-6 (Version None)
Quarter: 2008Q1

REPORT INFORMATION
  Report Type: 
  Country: None (occurrence: None)
  Receive Date: 20080103
  Receipt Date: 20071218
  Transmission Date: 20080703
  Serious: Yes (Other)
  Sender: FDA-Public Use
  Company Number: US-RANBAXY-2007US-07935

PATIENT

DRUGS (3)
  1. ISOTRETINOIN [Suspect]
     Indication: ACNE CYSTIC
     Dosage: 40 MG, QD
     Route: 048
     Dates: start: 20061201, end: 20070201
  2. ISOTRETINOIN [Suspect]
     Dosage: 40MGBID
     Dates: start: 20070201, end: 20070101
  3. ISOTRETINOIN [Suspect]
     Dosage: 40MG
     Dates: end: 20070501

REACTIONS (4)
  - DRUG INEFFECTIVE [None]
  - STAPHYLOCOCCAL INFECTION [None]
  - STREPTOCOCCAL INFECTION [None]
  - SWEAT GLAND INFECTION [None]
